FAERS Safety Report 4464812-0 (Version None)
Quarter: 2004Q4

REPORT INFORMATION
  Report Type: 
  Country: None (occurrence: None)
  Receive Date: 20041004
  Receipt Date: 20030915
  Transmission Date: 20050328
  Serious: No
  Sender: FDA-Public Use
  Company Number: US-GLAXOSMITHKLINE-A0425933A

PATIENT
  Age: 65 Year
  Sex: Male

DRUGS (9)
  1. COREG [Suspect]
     Route: 048
  2. ASPIRIN [Concomitant]
  3. GARLIC [Concomitant]
  4. VITAMIN C [Concomitant]
  5. CENTRUM MULTIVITAMIN [Concomitant]
  6. CITRACAL [Concomitant]
  7. VITAMIN E [Concomitant]
  8. SELENIUM TRACE METAL ADDITIVE [Concomitant]
  9. OMEGA-3 [Concomitant]

REACTIONS (1)
  - HEART RATE IRREGULAR [None]
